FAERS Safety Report 9515460 (Version 2)
Quarter: 2013Q3

REPORT INFORMATION
  Report Type: Spontaneous
  Country: JP (occurrence: JP)
  Receive Date: 20130911
  Receipt Date: 20130913
  Transmission Date: 20140515
  Serious: Yes (Other)
  Sender: FDA-Public Use
  Company Number: JP-PFIZER INC-2013261359

PATIENT
  Age: 64 Year
  Sex: Male

DRUGS (7)
  1. LYRICA [Suspect]
     Indication: HYPOAESTHESIA
     Dosage: 50 MG/DAY
     Route: 048
     Dates: start: 201307
  2. DAONIL [Concomitant]
     Dosage: UNK
  3. SEIBULE [Concomitant]
     Dosage: UNK
  4. GLYCORAN [Concomitant]
     Dosage: UNK
  5. BAYASPIRIN [Concomitant]
     Dosage: UNK
  6. LONGES [Concomitant]
     Dosage: UNK
  7. BENZMARONE [Concomitant]
     Dosage: UNK

REACTIONS (1)
  - Blood glucose increased [Unknown]
